FAERS Safety Report 9837086 (Version 2)
Quarter: 2014Q3

REPORT INFORMATION
  Report Type: Spontaneous
  Country: US (occurrence: US)
  Receive Date: 20140123
  Receipt Date: 20140818
  Transmission Date: 20150326
  Serious: Yes (Hospitalization)
  Sender: FDA-Public Use
  Company Number: US-009507513-1401USA005562

PATIENT
  Sex: Female
  Weight: 112.93 kg

DRUGS (2)
  1. NUVARING [Suspect]
     Active Substance: ETHINYL ESTRADIOL\ETONOGESTREL
     Indication: CONTRACEPTION
     Dosage: UNK
     Route: 067
     Dates: end: 20111006
  2. NUVARING [Suspect]
     Active Substance: ETHINYL ESTRADIOL\ETONOGESTREL
     Dosage: UNK
     Route: 067
     Dates: start: 20101116

REACTIONS (9)
  - Cyst [Unknown]
  - Ear pain [Unknown]
  - Migraine [Unknown]
  - Intracranial venous sinus thrombosis [Unknown]
  - Blood creatinine increased [Unknown]
  - Paranasal sinus mucosal hypertrophy [Unknown]
  - Anxiety [Unknown]
  - Colitis [Not Recovered/Not Resolved]
  - Depression [Unknown]

NARRATIVE: CASE EVENT DATE: 20111005
